FAERS Safety Report 4874068-2 (Version None)
Quarter: 2005Q4

REPORT INFORMATION
  Report Type: 
  Country: None (occurrence: None)
  Receive Date: 20051201
  Receipt Date: 20050808
  Transmission Date: 20060501
  Serious: No
  Sender: FDA-Public Use
  Company Number: 2005PV000929

PATIENT
  Age: 63 Year
  Sex: Male

DRUGS (5)
  1. BYETTA [Suspect]
     Indication: DIABETES MELLITUS NON-INSULIN-DEPENDENT
     Dosage: 10 MCG;BID;SC
     Route: 058
     Dates: start: 20050703
  2. STARLIX [Concomitant]
  3. AVANDIA [Concomitant]
  4. LAMOTRIGINE [Concomitant]
  5. KLONOPIN [Concomitant]

REACTIONS (1)
  - BLOOD GLUCOSE INCREASED [None]
